FAERS Safety Report 16925787 (Version 2)
Quarter: 2019Q4

REPORT INFORMATION
  Report Type: Spontaneous
  Country: US (occurrence: US)
  Receive Date: 20191016
  Receipt Date: 20191105
  Transmission Date: 20200122
  Serious: No
  Sender: FDA-Public Use
  Company Number: US-TOLMAR, INC.-19US000480

PATIENT
  Age: 72 Year
  Sex: Male

DRUGS (1)
  1. ELIGARD [Suspect]
     Active Substance: LEUPROLIDE ACETATE
     Indication: PRODUCT USED FOR UNKNOWN INDICATION
     Dosage: 30 MILLIGRAM, UNKNOWN FREQUENCY
     Route: 065

REACTIONS (2)
  - Intercepted product preparation error [None]
  - Needle issue [None]

NARRATIVE: CASE EVENT DATE: 20190930
